FAERS Safety Report 5158510-8 (Version None)
Quarter: 2006Q4

REPORT INFORMATION
  Report Type: 
  Country: None (occurrence: None)
  Receive Date: 20061117
  Receipt Date: 20061109
  Transmission Date: 20070319
  Serious: Yes (Hospitalization, Other)
  Sender: FDA-Public Use
  Company Number: FRWYE563606FEB04

PATIENT
  Age: 21 Year
  Sex: Female

DRUGS (5)
  1. RAPAMUNE [Suspect]
     Indication: PROPHYLAXIS AGAINST TRANSPLANT REJECTION
     Dosage: 15 MG 1X PER 1 DAY; 8 MG 1X PER 1 DAY
     Route: 048
     Dates: start: 20030506, end: 20030507
  2. RAPAMUNE [Suspect]
     Indication: PROPHYLAXIS AGAINST TRANSPLANT REJECTION
     Dosage: 15 MG 1X PER 1 DAY; 8 MG 1X PER 1 DAY
     Route: 048
     Dates: start: 20030508, end: 20031015
  3. RAPAMUNE [Suspect]
     Indication: PROPHYLAXIS AGAINST TRANSPLANT REJECTION
     Dosage: 15 MG 1X PER 1 DAY; 8 MG 1X PER 1 DAY
     Route: 048
     Dates: start: 20031016
  4. CELLCEPT [Concomitant]
  5. PREDNISOLONE [Concomitant]

REACTIONS (2)
  - POSTRENAL FAILURE [None]
  - URETERIC STENOSIS [None]
